FAERS Safety Report 7187045-6 (Version None)
Quarter: 2010Q4

REPORT INFORMATION
  Report Type: 
  Country: None (occurrence: None)
  Receive Date: 20101222
  Receipt Date: 20100823
  Transmission Date: 20110411
  Serious: No
  Sender: FDA-Public Use
  Company Number: US-AMGEN-TCS419562

PATIENT

DRUGS (1)
  1. ENBREL [Suspect]
     Indication: RHEUMATOID ARTHRITIS
     Dosage: 50 MG, QWK
     Route: 058
     Dates: start: 20100617

REACTIONS (7)
  - ANXIETY [None]
  - HEADACHE [None]
  - MYALGIA [None]
  - NAUSEA [None]
  - RASH [None]
  - SCAB [None]
  - SKIN HAEMORRHAGE [None]
